FAERS Safety Report 8197609-9 (Version None)
Quarter: 2012Q1

REPORT INFORMATION
  Report Type: 
  Country: None (occurrence: None)
  Receive Date: 20120309
  Receipt Date: 20120229
  Transmission Date: 20120608
  Serious: Yes (Other)
  Sender: FDA-Public Use
  Company Number: DE-TEVA-325260GER

PATIENT
  Age: 27 Year
  Sex: Female
  Weight: 46 kg

DRUGS (9)
  1. PREDNISOLONE [Suspect]
     Dosage: 10 MILLIGRAM;
     Route: 048
     Dates: start: 20100203, end: 20120212
  2. OMEPRAZOLE [Concomitant]
     Indication: GASTROOESOPHAGEAL REFLUX DISEASE
     Dosage: 20 MILLIGRAM;
     Route: 048
     Dates: start: 20100213, end: 20100720
  3. BUDENOFALK 3 MG [Concomitant]
     Indication: CROHN'S DISEASE
     Dosage: 6 MILLIGRAM;
     Route: 048
     Dates: start: 20100203, end: 20100216
  4. PREDNISOLONE [Suspect]
     Indication: CROHN'S DISEASE
     Dosage: 5 MILLIGRAM;
     Route: 048
     Dates: start: 20100110, end: 20100203
  5. FOLIO FORTE [Concomitant]
     Indication: PROPHYLAXIS OF NEURAL TUBE DEFECT
     Dosage: .8 MILLIGRAM;
     Route: 048
     Dates: start: 20091124, end: 20100720
  6. PREDNISOLONE [Suspect]
     Dosage: 10 MILLIGRAM;
     Route: 048
     Dates: start: 20100217, end: 20100720
  7. SALOFALK 500 [Concomitant]
     Indication: CROHN'S DISEASE
     Dosage: 3000 MILLIGRAM;
     Route: 048
     Dates: start: 20100203, end: 20100216
  8. NUX VOMICA-HEVERT [Concomitant]
     Indication: GASTROOESOPHAGEAL REFLUX DISEASE
     Route: 060
     Dates: start: 20100217, end: 20100720
  9. PREDNISOLONE [Suspect]
     Dosage: 5 MILLIGRAM;
     Route: 048
     Dates: start: 20120212, end: 20120216

REACTIONS (1)
  - GESTATIONAL DIABETES [None]
